FAERS Safety Report 24755874 (Version 6)
Quarter: 2025Q1

REPORT INFORMATION
  Report Type: Spontaneous
  Country: US (occurrence: US)
  Receive Date: 20241219
  Receipt Date: 20250224
  Transmission Date: 20250409
  Serious: Yes (Hospitalization)
  Sender: KARYOPHARM THERAPEUTICS
  Company Number: US-KARYOPHARM-2024KPT001913

PATIENT

DRUGS (15)
  1. XPOVIO [Suspect]
     Active Substance: SELINEXOR
     Indication: Plasma cell myeloma
     Dosage: 60 MG, WEEKLY FOR 3 AND THEN 1 WEEK OFF
     Route: 048
     Dates: start: 20241216
  2. ACYCLOVIR [Concomitant]
     Active Substance: ACYCLOVIR
  3. ENALAPRIL MALEATE [Concomitant]
     Active Substance: ENALAPRIL MALEATE
  4. GABAPENTIN [Concomitant]
     Active Substance: GABAPENTIN
  5. HUMULIN N [Concomitant]
     Active Substance: INSULIN HUMAN
  6. JARDIANCE [Concomitant]
     Active Substance: EMPAGLIFLOZIN
  7. LEVOFLOXACIN [Concomitant]
     Active Substance: LEVOFLOXACIN
  8. LIDOCAINE [Concomitant]
     Active Substance: LIDOCAINE
  9. NOVOLIN 70/30 [Concomitant]
     Active Substance: INSULIN HUMAN
  10. OMEPRAZOLE [Concomitant]
     Active Substance: OMEPRAZOLE
  11. OXYCODONE AND ACETAMINOPHEN [Concomitant]
     Active Substance: ACETAMINOPHEN\OXYCODONE HYDROCHLORIDE
  12. PANTOPRAZOLE SODIUM [Concomitant]
     Active Substance: PANTOPRAZOLE SODIUM
  13. SULFAMETHOXAZOLE AND TRIMETHOPRIM [Concomitant]
     Active Substance: SULFAMETHOXAZOLE\TRIMETHOPRIM
  14. INSULIN GLARGINE [Concomitant]
     Active Substance: INSULIN GLARGINE
  15. NALOXONE [Concomitant]
     Active Substance: NALOXONE

REACTIONS (9)
  - Pneumonia [Not Recovered/Not Resolved]
  - Cough [Unknown]
  - Plasma cell myeloma [Unknown]
  - Malaise [Unknown]
  - Pain in jaw [Unknown]
  - Nausea [Recovered/Resolved]
  - Asthenia [Unknown]
  - Product use issue [Unknown]
  - Product dose omission in error [Unknown]

NARRATIVE: CASE EVENT DATE: 20241201
